FAERS Safety Report 4324462-3 (Version None)
Quarter: 2004Q1

REPORT INFORMATION
  Report Type: 
  Country: None (occurrence: None)
  Receive Date: 20040326
  Receipt Date: 20040217
  Transmission Date: 20041129
  Serious: No
  Sender: FDA-Public Use
  Company Number: US-GLAXOSMITHKLINE-A0498546A

PATIENT
  Age: 82 Year
  Sex: Female

DRUGS (15)
  1. ADVAIR DISKUS 100/50 [Suspect]
     Route: 055
     Dates: start: 20040101
  2. ATROVENT [Concomitant]
     Route: 065
  3. ATENOLOL [Concomitant]
     Route: 065
  4. ZOCOR [Concomitant]
  5. POTASSIUM [Concomitant]
     Route: 065
  6. BUMEX [Concomitant]
  7. FLONASE [Concomitant]
  8. MIACALCIN [Concomitant]
  9. WARFARIN SODIUM [Concomitant]
  10. AVAPRO [Concomitant]
  11. ASPIRIN [Concomitant]
  12. XOPENEX [Concomitant]
  13. OXYGEN [Concomitant]
  14. ACIPHEX [Concomitant]
  15. GAVISCON [Concomitant]

REACTIONS (4)
  - FATIGUE [None]
  - HOARSENESS [None]
  - ORAL CANDIDIASIS [None]
  - PALPITATIONS [None]
